FAERS Safety Report 6527915-2 (Version None)
Quarter: 2010Q1

REPORT INFORMATION
  Report Type: 
  Country: None (occurrence: None)
  Receive Date: 20100105
  Receipt Date: 20100105
  Transmission Date: 20100710
  Serious: No
  Sender: FDA-Public Use
  Company Number: None

PATIENT
  Age: 27 Year
  Sex: Male

DRUGS (2)
  1. IOPROMIDE [Suspect]
     Indication: SCAN WITH CONTRAST
     Dosage: 300 MG ONCE IV
     Route: 042
     Dates: start: 20091006, end: 20091006
  2. DIATRIZOATE [Suspect]
     Dosage: 25 ML ONCE PO
     Route: 048
     Dates: start: 20091006, end: 20091006

REACTIONS (3)
  - CONTRAST MEDIA REACTION [None]
  - RASH [None]
  - URTICARIA [None]
